FAERS Safety Report 23124212 (Version 1)
Quarter: 2023Q4

REPORT INFORMATION
  Report Type: Spontaneous
  Country: US (occurrence: None)
  Receive Date: 20231027
  Receipt Date: 20231027
  Transmission Date: 20240110
  Serious: Yes (Disabling)
  Sender: FDA-Public Use
  Company Number: None

PATIENT
  Age: 63 Year
  Sex: Female
  Weight: 53.55 kg

DRUGS (6)
  1. CIPROFLOXACIN [Suspect]
     Active Substance: CIPROFLOXACIN
     Indication: Nephrolithiasis
     Dosage: FREQUENCY : TWICE A DAY;?
     Route: 048
     Dates: start: 20230108, end: 20230113
  2. LOSARTAN [Concomitant]
     Active Substance: LOSARTAN
  3. FAMOTIDINE [Concomitant]
     Active Substance: FAMOTIDINE
  4. HYDROCHLOROTHIAZIDE [Concomitant]
     Active Substance: HYDROCHLOROTHIAZIDE
  5. VITAMINS [Concomitant]
     Active Substance: VITAMINS
  6. CALCIUM [Concomitant]
     Active Substance: CALCIUM

REACTIONS (9)
  - Paraesthesia [None]
  - Hypoaesthesia [None]
  - Neuropathy peripheral [None]
  - Infection [None]
  - Radiculopathy [None]
  - Anxiety [None]
  - Insomnia [None]
  - Stress [None]
  - Quality of life decreased [None]

NARRATIVE: CASE EVENT DATE: 20230202
